FAERS Safety Report 6416976-7 (Version None)
Quarter: 2009Q4

REPORT INFORMATION
  Report Type: 
  Country: None (occurrence: None)
  Receive Date: 20091023
  Receipt Date: 20091012
  Transmission Date: 20100525
  Serious: Yes (Death, Hospitalization)
  Sender: FDA-Public Use
  Company Number: 89598

PATIENT
  Age: 69 Year
  Sex: Female
  Weight: 62 kg

DRUGS (1)
  1. ACYCLOVIR [Suspect]
     Indication: ENCEPHALITIS HERPES
     Dosage: 600MG IV 3XS A DAY

REACTIONS (14)
  - ATRIAL FIBRILLATION [None]
  - COMA [None]
  - DEHYDRATION [None]
  - ENCEPHALITIS VIRAL [None]
  - EPILEPSY [None]
  - EPSTEIN-BARR VIRUS INFECTION [None]
  - HYPOTENSION [None]
  - INTESTINAL ISCHAEMIA [None]
  - NEUROTOXICITY [None]
  - RECTAL HAEMORRHAGE [None]
  - RENAL IMPAIRMENT [None]
  - RESPIRATORY FAILURE [None]
  - SEPSIS [None]
  - WOUND HAEMORRHAGE [None]
